FAERS Safety Report 9988114 (Version 1)
Quarter: 2014Q1

REPORT INFORMATION
  Report Type: Spontaneous
  Country: US (occurrence: US)
  Receive Date: 20140308
  Receipt Date: 20140308
  Transmission Date: 20141002
  Serious: Yes (Hospitalization)
  Sender: FDA-Public Use
  Company Number: US-AMGEN-USASP2014016177

PATIENT
  Age: 9 Month
  Sex: Female

DRUGS (1)
  1. EPOGEN [Suspect]
     Indication: ANAEMIA
     Dosage: 1000 UNIT, TWICE A WEEK
     Route: 065
     Dates: start: 201309

REACTIONS (4)
  - Dehydration [Unknown]
  - Blood sodium abnormal [Unknown]
  - Blood creatinine abnormal [Unknown]
  - Pyrexia [Unknown]
